FAERS Safety Report 7519689-3 (Version None)
Quarter: 2011Q2

REPORT INFORMATION
  Report Type: 
  Country: None (occurrence: None)
  Receive Date: 20110602
  Receipt Date: 20110526
  Transmission Date: 20111010
  Serious: Yes (Disabling, Other)
  Sender: FDA-Public Use
  Company Number: US-PFIZER INC-2011114804

PATIENT
  Sex: Female
  Weight: 117.91 kg

DRUGS (4)
  1. CHANTIX [Suspect]
     Indication: SMOKING CESSATION THERAPY
     Dosage: 0.5 MG, 1X/DAY
     Route: 048
     Dates: start: 20090101
  2. CHANTIX [Suspect]
     Dosage: 0.5 MG, UNK
     Dates: start: 20100801
  3. CHANTIX [Suspect]
     Dosage: 1 MG, 2X/DAY
     Route: 048
  4. NORVASC [Concomitant]
     Indication: HYPERTENSION
     Dosage: 5 MG, 1X/DAY

REACTIONS (9)
  - DEFORMITY [None]
  - TOOTH LOSS [None]
  - ANGER [None]
  - INSOMNIA [None]
  - GINGIVAL SWELLING [None]
  - TOOTH EXTRACTION [None]
  - MOOD ALTERED [None]
  - PAIN [None]
  - ABNORMAL DREAMS [None]
